FAERS Safety Report 13870906 (Version 2)
Quarter: 2017Q3

REPORT INFORMATION
  Report Type: Spontaneous
  Country: CN (occurrence: CN)
  Receive Date: 20170816
  Receipt Date: 20170824
  Transmission Date: 20171127
  Serious: Yes (Other)
  Sender: FDA-Public Use
  Company Number: CN-UNICHEM LABORATORIES LIMITED-UCM201708-000208

PATIENT
  Age: 16 Year
  Sex: Male

DRUGS (3)
  1. VALPROATE [Concomitant]
     Active Substance: VALPROIC ACID
  2. OLANZAPINE. [Concomitant]
     Active Substance: OLANZAPINE
  3. QUETIAPINE. [Suspect]
     Active Substance: QUETIAPINE
     Indication: BIPOLAR DISORDER

REACTIONS (4)
  - Hypotension [Unknown]
  - Somnolence [Unknown]
  - Syncope [Recovered/Resolved]
  - Asthenia [Unknown]
